FAERS Safety Report 7174792-5 (Version None)
Quarter: 2010Q4

REPORT INFORMATION
  Report Type: 
  Country: None (occurrence: None)
  Receive Date: 20101219
  Receipt Date: 20101207
  Transmission Date: 20110411
  Serious: Yes (Hospitalization)
  Sender: FDA-Public Use
  Company Number: PR-AMGEN-KDL443014

PATIENT

DRUGS (7)
  1. PROCRIT [Suspect]
     Indication: RENAL FAILURE CHRONIC
     Dosage: 40000 IU, QWK
     Route: 058
     Dates: start: 20100929, end: 20101011
  2. TAMOXIFEN CITRATE [Concomitant]
     Dosage: UNK UNK, UNK
     Dates: start: 20100101
  3. INSULIN GLARGINE [Concomitant]
     Dosage: UNK UNK, QD
     Route: 058
  4. INSULIN HUMAN INJECTION [Concomitant]
     Dosage: UNK UNK, BID
     Route: 058
  5. IRBESARTAN [Concomitant]
     Dosage: 300 MG, BID
     Route: 048
  6. CARVEDILOL [Concomitant]
     Dosage: 25 MG, QD
     Route: 048
  7. LEVOTHYROXINE SODIUM [Concomitant]
     Dosage: .1 MG, QD
     Route: 048

REACTIONS (6)
  - BLOOD CHOLESTEROL INCREASED [None]
  - BLOOD POTASSIUM INCREASED [None]
  - BREAST CANCER [None]
  - CHEST PAIN [None]
  - OEDEMA PERIPHERAL [None]
  - RASH [None]
